FAERS Safety Report 25399666 (Version 2)
Quarter: 2025Q4

REPORT INFORMATION
  Report Type: Report from Study
  Country: US (occurrence: US)
  Receive Date: 20250605
  Receipt Date: 20251119
  Transmission Date: 20260118
  Serious: Yes (Death)
  Sender: AMGEN
  Company Number: US-AMGEN-USASP2025109063

PATIENT
  Age: 82 Year
  Sex: Female

DRUGS (1)
  1. PROLIA [Suspect]
     Active Substance: DENOSUMAB
     Indication: Osteoporosis
     Dosage: UNK, Q6MO (1 SYRINGE EVERY 180 DAYS)
     Route: 065
     Dates: end: 20250519

REACTIONS (1)
  - Death [Fatal]

NARRATIVE: CASE EVENT DATE: 20250519
